FAERS Safety Report 26142854 (Version 1)
Quarter: 2025Q4

REPORT INFORMATION
  Report Type: Spontaneous
  Country: US (occurrence: US)
  Receive Date: 20251211
  Receipt Date: 20251211
  Transmission Date: 20260117
  Serious: No
  Sender: BIOGEN
  Company Number: US-BIOGEN-2025BI01315575

PATIENT
  Age: 58 Year
  Sex: Female

DRUGS (1)
  1. SKYCLARYS [Suspect]
     Active Substance: OMAVELOXOLONE
     Indication: Friedreich^s ataxia
     Dates: start: 20241004

REACTIONS (7)
  - Friedreich^s ataxia [Unknown]
  - Micturition urgency [Unknown]
  - Pain [Unknown]
  - Tremor [Unknown]
  - Somnolence [Unknown]
  - Fatigue [Unknown]
  - Urinary retention [Unknown]
